FAERS Safety Report 6825528-6 (Version None)
Quarter: 2010Q3

REPORT INFORMATION
  Report Type: 
  Country: None (occurrence: None)
  Receive Date: 20100708
  Receipt Date: 20061120
  Transmission Date: 20110219
  Serious: No
  Sender: FDA-Public Use
  Company Number: US-PFIZER INC-2006147458

PATIENT
  Sex: Female
  Weight: 68.04 kg

DRUGS (3)
  1. CHANTIX [Suspect]
     Indication: SMOKING CESSATION THERAPY
     Dates: start: 20061112
  2. SYNTHROID [Concomitant]
     Indication: AUTOIMMUNE THYROIDITIS
  3. WELLBUTRIN [Concomitant]
     Indication: DEPRESSION

REACTIONS (2)
  - ANXIETY [None]
  - STRESS [None]
